FAERS Safety Report 7671870-9 (Version None)
Quarter: 2011Q3

REPORT INFORMATION
  Report Type: 
  Country: None (occurrence: None)
  Receive Date: 20110726
  Receipt Date: 20110715
  Transmission Date: 20111222
  Serious: Yes (Hospitalization)
  Sender: FDA-Public Use
  Company Number: JHP201100206

PATIENT
  Age: 37 Year
  Sex: Female

DRUGS (2)
  1. VITAMIN TAB [Concomitant]
  2. APLISOL [Suspect]
     Indication: TUBERCULIN TEST
     Dosage: 0.1 ML, SINGLE, INTRADERMAL
     Route: 023
     Dates: start: 20110607, end: 20110607

REACTIONS (4)
  - MUSCULAR WEAKNESS [None]
  - PARAESTHESIA [None]
  - HYPOAESTHESIA [None]
  - SENSATION OF HEAVINESS [None]
